FAERS Safety Report 8849366 (Version 2)
Quarter: 2014Q2

REPORT INFORMATION
  Report Type: Spontaneous
  Country: FR (occurrence: FR)
  Receive Date: 20121017
  Receipt Date: 20131018
  Transmission Date: 20141212
  Serious: Yes (Death)
  Sender: FDA-Public Use
  Company Number: FR-PFIZER INC-2012252530

PATIENT
  Age: 61 Year
  Sex: Female

DRUGS (3)
  1. ARACYTINE [Suspect]
     Dosage: 100 MG/M2, CYCLIC
     Route: 042
     Dates: start: 20080520, end: 20080526
  2. ZAVEDOS [Suspect]
     Dosage: 8 MG/M2, CYCLIC
     Route: 048
     Dates: start: 20080520, end: 20080524
  3. BELUSTINE [Suspect]
     Dosage: 20 MG/M2, CYCLIC
     Route: 048
     Dates: start: 20080520, end: 20080520

REACTIONS (2)
  - Bone marrow failure [Fatal]
  - Septic shock [Fatal]
